FAERS Safety Report 17585968 (Version 1)
Quarter: 2020Q1

REPORT INFORMATION
  Report Type: Spontaneous
  Country: US (occurrence: US)
  Receive Date: 20200325
  Receipt Date: 20200325
  Transmission Date: 20200409
  Serious: No
  Sender: FDA-Public Use
  Company Number: None

PATIENT
  Age: 77 Year
  Sex: Male

DRUGS (1)
  1. RETACRIT [Suspect]
     Active Substance: EPOETIN ALFA-EPBX
     Dosage: ?          OTHER DOSE:40,000 UNITS;OTHER FREQUENCY:UNKNOWN;?
     Route: 058
     Dates: start: 202003

REACTIONS (2)
  - Tongue discomfort [None]
  - Paraesthesia oral [None]

NARRATIVE: CASE EVENT DATE: 20200324
